FAERS Safety Report 21733747 (Version 1)
Quarter: 2022Q4

REPORT INFORMATION
  Report Type: Report from Study
  Country: CN (occurrence: CN)
  Receive Date: 20221215
  Receipt Date: 20221215
  Transmission Date: 20230112
  Serious: Yes (Death, Other)
  Sender: FDA-Public Use
  Company Number: CN-PFIZER INC-202201359463

PATIENT
  Age: 5 Month
  Sex: Male

DRUGS (7)
  1. DOXORUBICIN HYDROCHLORIDE [Suspect]
     Active Substance: DOXORUBICIN HYDROCHLORIDE
     Indication: Congenital fibrosarcoma
     Dosage: 1 MG/KG, CYCLIC (D2, 3 CYCLES)
  2. CISPLATIN [Suspect]
     Active Substance: CISPLATIN
     Indication: Congenital fibrosarcoma
     Dosage: 3 MG/KG, CYCLIC (D1, 3 CYCLES)
  3. VINCRISTINE [Suspect]
     Active Substance: VINCRISTINE
     Indication: Congenital fibrosarcoma
     Dosage: 0.05 MG/KG, CYCLIC (D1, 8 CYCLES)
  4. VINCRISTINE [Suspect]
     Active Substance: VINCRISTINE
     Dosage: 0.05 MG/KG, CYCLIC (D1, 3 CYCLES)
  5. CYCLOPHOSPHAMIDE [Suspect]
     Active Substance: CYCLOPHOSPHAMIDE
     Indication: Congenital fibrosarcoma
     Dosage: 40 MG/KG, CYCLIC (D1, 8 CYCLES)
  6. CYCLOPHOSPHAMIDE [Suspect]
     Active Substance: CYCLOPHOSPHAMIDE
     Dosage: 10 MG/KG, CYCLIC (D2-D4, 3 CYCLES)
  7. ACTINOMYCIN D [Suspect]
     Active Substance: DACTINOMYCIN
     Indication: Congenital fibrosarcoma
     Dosage: 0.045 MG/KG, CYCLIC (D1, 3 CYCLES)

REACTIONS (4)
  - Hydronephrosis [Fatal]
  - Pneumonia [Fatal]
  - Myelosuppression [Unknown]
  - Febrile neutropenia [Unknown]
